FAERS Safety Report 19701988 (Version 2)
Quarter: 2021Q3

REPORT INFORMATION
  Report Type: Report from Study
  Country: US (occurrence: US)
  Receive Date: 20210813
  Receipt Date: 20210921
  Transmission Date: 20211014
  Serious: Yes (Other)
  Sender: FDA-Public Use
  Company Number: US-SUNOVION-2021SUN002988

PATIENT
  Age: 71 Year
  Sex: Male
  Weight: 60.78 kg

DRUGS (1)
  1. KYNMOBI [Suspect]
     Active Substance: APOMORPHINE HYDROCHLORIDE
     Indication: PARKINSON^S DISEASE
     Dosage: 10 MG
     Route: 060
     Dates: start: 20210730, end: 20210730

REACTIONS (7)
  - Dizziness [Recovered/Resolved]
  - Somnolence [Recovered/Resolved]
  - Pallor [Recovered/Resolved]
  - Loss of consciousness [Recovered/Resolved]
  - Cold sweat [Recovered/Resolved]
  - Yawning [Recovered/Resolved]
  - Blood pressure decreased [Recovered/Resolved]

NARRATIVE: CASE EVENT DATE: 20210730
